FAERS Safety Report 9362749 (Version 1)
Quarter: 2013Q2

REPORT INFORMATION
  Report Type: Spontaneous
  Country: US (occurrence: US)
  Receive Date: 20130623
  Receipt Date: 20130623
  Transmission Date: 20140414
  Serious: Yes (Other)
  Sender: FDA-Public Use
  Company Number: US-ALLERGAN-1308651US

PATIENT
  Age: 50 Year
  Sex: Female
  Weight: 72.56 kg

DRUGS (2)
  1. GENTAMICIN UNK [Suspect]
     Indication: EAR DISORDER
     Dosage: UNK
     Route: 001
  2. COREG [Concomitant]
     Indication: PRODUCT USED FOR UNKNOWN INDICATION
     Dosage: 25 MG, UNK

REACTIONS (6)
  - Ototoxicity [Unknown]
  - Deafness neurosensory [Unknown]
  - Autoimmune thyroiditis [Unknown]
  - Hypothyroidism [Unknown]
  - Tympanic membrane perforation [Unknown]
  - Incorrect route of drug administration [Unknown]
